FAERS Safety Report 21441248 (Version 1)
Quarter: 2022Q4

REPORT INFORMATION
  Report Type: Spontaneous
  Country: US (occurrence: None)
  Receive Date: 20221010
  Receipt Date: 20221010
  Transmission Date: 20230112
  Serious: Yes (Other)
  Sender: FDA-Public Use
  Company Number: None

PATIENT
  Age: 62 Year
  Sex: Female
  Weight: 107.55 kg

DRUGS (13)
  1. TRIAMCINOLONE [Suspect]
     Active Substance: TRIAMCINOLONE
     Dates: start: 20220921, end: 20220921
  2. Valsartan-hydrchlorothiazide combo [Concomitant]
  3. ALLEGRA [Concomitant]
     Active Substance: FEXOFENADINE HYDROCHLORIDE
  4. IBUPROFEN [Concomitant]
     Active Substance: IBUPROFEN
  5. Estradiol 1-2gm vaginally per week [Concomitant]
  6. VITAMINS [Concomitant]
     Active Substance: VITAMINS
  7. VITAMIN C [Concomitant]
     Active Substance: ASCORBIC ACID
  8. VITAMIN D NOS [Concomitant]
     Active Substance: VITAMIN D NOS
  9. VITAMIN B12 [Concomitant]
     Active Substance: CYANOCOBALAMIN
  10. FISH OIL [Concomitant]
     Active Substance: FISH OIL
  11. GAS-X [Concomitant]
     Active Substance: DIMETHICONE
  12. pro-biotics [Concomitant]
  13. Lactaid caplets [Concomitant]

REACTIONS (3)
  - Uterine haemorrhage [None]
  - Vaginal haemorrhage [None]
  - Postmenopausal haemorrhage [None]

NARRATIVE: CASE EVENT DATE: 20221005
